FAERS Safety Report 9499606 (Version 2)
Quarter: 2013Q4

REPORT INFORMATION
  Report Type: Spontaneous
  Country: FR (occurrence: FR)
  Receive Date: 20130905
  Receipt Date: 20131010
  Transmission Date: 20140711
  Serious: Yes (Other)
  Sender: FDA-Public Use
  Company Number: FR-ROCHE-1270350

PATIENT
  Age: 65 Year
  Sex: Female

DRUGS (16)
  1. AVASTIN [Suspect]
     Indication: ADENOCARCINOMA OF COLON
     Route: 042
     Dates: start: 20120223
  2. AVASTIN [Suspect]
     Route: 042
     Dates: start: 20130104, end: 20130117
  3. AVASTIN [Suspect]
     Route: 042
     Dates: start: 20130313
  4. AVASTIN [Suspect]
     Route: 042
     Dates: start: 20130403
  5. AVASTIN [Suspect]
     Route: 042
     Dates: start: 20130425, end: 20130626
  6. XELODA [Suspect]
     Indication: ADENOCARCINOMA OF COLON
     Route: 048
     Dates: start: 20120223
  7. XELODA [Suspect]
     Dosage: 2 TABLETS IN THE MORNING AND ONE TABLET IN THE EVENING
     Route: 048
     Dates: start: 20130104, end: 20130117
  8. XELODA [Suspect]
     Route: 048
     Dates: start: 20130313
  9. XELODA [Suspect]
     Route: 048
     Dates: start: 20130403
  10. XELODA [Suspect]
     Route: 048
     Dates: start: 20130425
  11. AMLOR [Concomitant]
     Indication: HYPERTENSION
     Dosage: LONG-TERM TREATMENT
     Route: 048
  12. ULTRAPROCT (FRANCE) [Concomitant]
     Indication: PROCTALGIA
     Route: 003
  13. IRINOTECAN [Concomitant]
     Indication: ADENOCARCINOMA OF COLON
     Route: 065
     Dates: start: 20120223, end: 20130104
  14. OXALIPLATIN [Concomitant]
     Route: 065
     Dates: start: 20130104
  15. OXALIPLATIN [Concomitant]
     Route: 065
     Dates: start: 20130313
  16. OXALIPLATIN [Concomitant]
     Route: 065
     Dates: start: 20130403, end: 20130515

REACTIONS (2)
  - Hypertension [Unknown]
  - Proteinuria [Unknown]
